FAERS Safety Report 13881213 (Version 1)
Quarter: 2017Q3

REPORT INFORMATION
  Report Type: Spontaneous
  Country: JP (occurrence: JP)
  Receive Date: 20170818
  Receipt Date: 20170818
  Transmission Date: 20171127
  Serious: Yes (Other)
  Sender: FDA-Public Use
  Company Number: JP-PFIZER INC-2017357429

PATIENT
  Age: 69 Year
  Sex: Male

DRUGS (4)
  1. AVAPRO [Concomitant]
     Active Substance: IRBESARTAN
     Route: 048
  2. CELECOX [Suspect]
     Active Substance: CELECOXIB
     Indication: SPINAL OSTEOARTHRITIS
     Dosage: UNK
     Route: 048
     Dates: start: 20170727
  3. BUFFERIN [Concomitant]
     Active Substance: ASPIRIN
     Route: 048
  4. NIFEDIPINE. [Concomitant]
     Active Substance: NIFEDIPINE
     Route: 048

REACTIONS (3)
  - Anaphylactic shock [Recovered/Resolved]
  - Acute myocardial infarction [Recovered/Resolved]
  - Kounis syndrome [Recovered/Resolved]

NARRATIVE: CASE EVENT DATE: 20170727
